FAERS Safety Report 7027972-3 (Version None)
Quarter: 2010Q4

REPORT INFORMATION
  Report Type: 
  Country: None (occurrence: None)
  Receive Date: 20101005
  Receipt Date: 20100924
  Transmission Date: 20110411
  Serious: No
  Sender: FDA-Public Use
  Company Number: US-ROXANE LABORATORIES, INC.-2010-RO-01310RO

PATIENT
  Sex: Male

DRUGS (2)
  1. ZIDOVUDINE [Suspect]
     Indication: PROPHYLAXIS AGAINST HIV INFECTION
     Dosage: 600 MG
     Dates: start: 20100819, end: 20100915
  2. VITAMINS [Concomitant]

REACTIONS (6)
  - ARTHRALGIA [None]
  - ASTHENIA [None]
  - BLOOD LACTIC ACID INCREASED [None]
  - CONSTIPATION [None]
  - HEADACHE [None]
  - SLUGGISHNESS [None]
